FAERS Safety Report 25718581 (Version 1)
Quarter: 2025Q3

REPORT INFORMATION
  Report Type: Spontaneous
  Country: EU (occurrence: EU)
  Receive Date: 20250823
  Receipt Date: 20250823
  Transmission Date: 20251020
  Serious: Yes (Hospitalization, Other)
  Sender: AUROBINDO
  Company Number: EU-ROCHE-3254097

PATIENT
  Age: 69 Year
  Sex: Male

DRUGS (7)
  1. MYCOPHENOLIC ACID [Interacting]
     Active Substance: MYCOPHENOLIC ACID
     Indication: Kidney transplant rejection
     Dosage: 750 MILLIGRAM, TWO TIMES A DAY
     Route: 065
     Dates: start: 2015
  2. MYCOPHENOLIC ACID [Interacting]
     Active Substance: MYCOPHENOLIC ACID
     Indication: Prophylaxis against transplant rejection
  3. MYCOPHENOLIC ACID [Interacting]
     Active Substance: MYCOPHENOLIC ACID
     Indication: Renal transplant
  4. ACYCLOVIR [Interacting]
     Active Substance: ACYCLOVIR
     Indication: Encephalitis herpes
     Dosage: 10 MILLIGRAM/KILOGRAM, TWO TIMES A DAY (AT LEAST 21 DAYS)
     Route: 065
  5. ACYCLOVIR [Interacting]
     Active Substance: ACYCLOVIR
     Dosage: 500 MILLIGRAM, TWO TIMES A DAY
     Route: 065
     Dates: start: 2021
  6. ACYCLOVIR [Interacting]
     Active Substance: ACYCLOVIR
     Dosage: 400 MILLIGRAM, TWO TIMES A DAY
     Route: 065
     Dates: start: 2021
  7. ACYCLOVIR [Interacting]
     Active Substance: ACYCLOVIR
     Dosage: 250 MILLIGRAM, TWO TIMES A DAY, AT LEAST 21 DAYS
     Route: 065

REACTIONS (9)
  - Neurotoxicity [Recovering/Resolving]
  - Confusional state [Not Recovered/Not Resolved]
  - Drug interaction [Recovered/Resolved]
  - Myoclonus [Recovered/Resolved]
  - Antiviral drug level above therapeutic [Recovered/Resolved]
  - Blood creatinine increased [Recovered/Resolved]
  - Drug level increased [Recovered/Resolved]
  - Overdose [Unknown]
  - Encephalitis herpes [Unknown]

NARRATIVE: CASE EVENT DATE: 20210101
